FAERS Safety Report 7428548-6 (Version None)
Quarter: 2011Q2

REPORT INFORMATION
  Report Type: 
  Country: None (occurrence: None)
  Receive Date: 20110412
  Receipt Date: 20110406
  Transmission Date: 20111010
  Serious: Yes (Other)
  Sender: FDA-Public Use
  Company Number: WAES 1104USA00572

PATIENT
  Sex: Female

DRUGS (2)
  1. LIPITOR [Suspect]
     Indication: BLOOD CHOLESTEROL
     Dosage: 10 MG/DAILY/PO
     Route: 048
     Dates: start: 20110329
  2. FOSAMAX [Suspect]
     Indication: BONE DENSITY ABNORMAL
     Dosage: PO
     Route: 048

REACTIONS (2)
  - PAIN IN JAW [None]
  - WEIGHT DECREASED [None]
